FAERS Safety Report 15015080 (Version 1)
Quarter: 2018Q2

REPORT INFORMATION
  Report Type: Report from Study
  Country: US (occurrence: US)
  Receive Date: 20180615
  Receipt Date: 20180615
  Transmission Date: 20180711
  Serious: No
  Sender: FDA-Public Use
  Company Number: PHEH2018US023838

PATIENT
  Age: 58 Year
  Sex: Female

DRUGS (2)
  1. COSENTYX [Suspect]
     Active Substance: SECUKINUMAB
     Indication: PSORIASIS
     Dosage: UNK
     Route: 058
     Dates: start: 20180509
  2. COSENTYX [Suspect]
     Active Substance: SECUKINUMAB
     Dosage: 5TH DOSE
     Route: 058
     Dates: start: 20180606

REACTIONS (2)
  - Drug ineffective [Unknown]
  - Affective disorder [Unknown]

NARRATIVE: CASE EVENT DATE: 20180509
